FAERS Safety Report 9687645 (Version 1)
Quarter: 2013Q4

REPORT INFORMATION
  Report Type: Report from Study
  Country: US (occurrence: US)
  Receive Date: 20131114
  Receipt Date: 20131114
  Transmission Date: 20140711
  Serious: Yes (Other)
  Sender: FDA-Public Use
  Company Number: US-ABBVIE-13P-163-1166842-00

PATIENT
  Age: 44 Year
  Sex: Female

DRUGS (3)
  1. HUMIRA [Suspect]
     Indication: RHEUMATOID ARTHRITIS
     Route: 058
     Dates: start: 201306, end: 201306
  2. HUMIRA [Suspect]
     Route: 058
     Dates: start: 201308
  3. NAPROSYN [Concomitant]
     Indication: RHEUMATOID ARTHRITIS

REACTIONS (6)
  - Female sterilisation [Unknown]
  - Uterine dilation and curettage [Unknown]
  - Uterine operation [Unknown]
  - Upper respiratory tract infection [Recovered/Resolved]
  - Respiratory tract congestion [Unknown]
  - Upper respiratory tract infection [Unknown]
